FAERS Safety Report 5240589-6 (Version None)
Quarter: 2007Q1

REPORT INFORMATION
  Report Type: 
  Country: None (occurrence: None)
  Receive Date: 20070219
  Receipt Date: 20070209
  Transmission Date: 20070707
  Serious: Yes (Other)
  Sender: FDA-Public Use
  Company Number: 2007UW02859

PATIENT
  Age: 68 Year
  Sex: Male

DRUGS (2)
  1. XYLOCAINE TOPICAL FILM [Suspect]
     Indication: LOCAL ANAESTHESIA
     Route: 061
  2. GLUCONORM [Concomitant]

REACTIONS (1)
  - URETHRAL HAEMORRHAGE [None]
